FAERS Safety Report 11335807 (Version 1)
Quarter: 2015Q3

REPORT INFORMATION
  Report Type: Spontaneous
  Country: TW (occurrence: TW)
  Receive Date: 20150804
  Receipt Date: 20150804
  Transmission Date: 20151125
  Serious: Yes (Other)
  Sender: FDA-Public Use
  Company Number: TW-PFIZER INC-2015247941

PATIENT
  Age: 49 Year
  Sex: Male

DRUGS (2)
  1. HERBAL NOS [Interacting]
     Active Substance: HERBALS
     Dosage: UNK
  2. PHENYTOIN SODIUM. [Suspect]
     Active Substance: PHENYTOIN SODIUM
     Indication: EPILEPSY
     Dosage: UNK

REACTIONS (3)
  - Anticonvulsant drug level below therapeutic [Unknown]
  - Seizure [Recovering/Resolving]
  - Drug interaction [Recovering/Resolving]
